FAERS Safety Report 6424775-5 (Version None)
Quarter: 2009Q4

REPORT INFORMATION
  Report Type: 
  Country: None (occurrence: None)
  Receive Date: 20091103
  Receipt Date: 20091026
  Transmission Date: 20100525
  Serious: Yes (Hospitalization)
  Sender: FDA-Public Use
  Company Number: FR-TYCO HEALTHCARE/MALLINCKRODT-T200901944

PATIENT
  Sex: Female

DRUGS (3)
  1. OPTIJECT [Suspect]
     Indication: SCAN BRAIN
     Dosage: UNK
     Dates: start: 20081204, end: 20081204
  2. TEGRETOL [Suspect]
     Indication: MIGRAINE
     Dosage: UNK
     Route: 048
     Dates: start: 20081001, end: 20081201
  3. CEPHALEXIN [Suspect]
     Indication: EAR INFECTION

REACTIONS (1)
  - DRUG RASH WITH EOSINOPHILIA AND SYSTEMIC SYMPTOMS [None]
